FAERS Safety Report 6033970-9 (Version None)
Quarter: 2009Q1

REPORT INFORMATION
  Report Type: 
  Country: None (occurrence: None)
  Receive Date: 20090112
  Receipt Date: 20090107
  Transmission Date: 20090719
  Serious: Yes (Other)
  Sender: FDA-Public Use
  Company Number: PHBS2009CN00458

PATIENT
  Age: 23 Year
  Sex: Female

DRUGS (1)
  1. CYCLOSPORINE [Suspect]
     Indication: LIVER TRANSPLANT
     Dosage: UNK

REACTIONS (3)
  - ABORTION INDUCED [None]
  - COMPLICATIONS OF TRANSPLANTED LIVER [None]
  - DRUG EXPOSURE DURING PREGNANCY [None]
